FAERS Safety Report 8787708 (Version 1)
Quarter: 2012Q4

REPORT INFORMATION
  Report Type: 
  Country: US (occurrence: US)
  Receive Date: 20120914
  Receipt Date: 20120914
  Transmission Date: 20130627
  Serious: Yes (Other)
  Sender: FDA-Public Use
  Company Number: US-VERTEX PHARMACEUTICAL INC.-AE-2012-008171

PATIENT

DRUGS (18)
  1. INCIVEK [Suspect]
     Indication: HEPATITIS C
     Route: 048
     Dates: start: 20120413
  2. RIBAPAK [Concomitant]
     Indication: HEPATITIS C
     Route: 048
     Dates: start: 20120413
  3. RIBAPAK [Concomitant]
  4. RIBAPAK [Concomitant]
  5. PEGASYS [Concomitant]
     Indication: HEPATITIS C
     Route: 058
     Dates: start: 20120412
  6. THYROID MEDICATION [Concomitant]
  7. PREMARIN [Concomitant]
  8. ZOFRAN [Concomitant]
  9. LEVOTHYROXINE SODIUM [Concomitant]
  10. PRILOSEC [Concomitant]
  11. HYDROCHLOROT [Concomitant]
  12. POTASSIUM [Concomitant]
  13. DESOXIMETAS [Concomitant]
  14. ALEVE [Concomitant]
  15. CETAPHIL ANTIBACTERIAL [Concomitant]
  16. HYDROXIYZINE HCL [Concomitant]
  17. MAALOX ADVACED [Concomitant]
  18. MIRALAX [Concomitant]

REACTIONS (15)
  - Anaemia [Not Recovered/Not Resolved]
  - Headache [Unknown]
  - Constipation [Unknown]
  - Dry skin [Unknown]
  - Alopecia [Unknown]
  - Blood potassium decreased [Unknown]
  - Fatigue [Unknown]
  - Rash erythematous [Not Recovered/Not Resolved]
  - Haemorrhoids [Not Recovered/Not Resolved]
  - Diarrhoea [Unknown]
  - Vomiting [Unknown]
  - Anal pruritus [Unknown]
  - Anorectal discomfort [Not Recovered/Not Resolved]
  - Nausea [Unknown]
  - Dysgeusia [Not Recovered/Not Resolved]
